FAERS Safety Report 10263439 (Version 2)
Quarter: 2014Q2

REPORT INFORMATION
  Report Type: Spontaneous
  Country: US (occurrence: US)
  Receive Date: 20140626
  Receipt Date: 20140626
  Transmission Date: 20141212
  Serious: Yes (Hospitalization, Other)
  Sender: FDA-Public Use
  Company Number: US-BIOMARINAP-US-2014-102354

PATIENT
  Age: 28 Year
  Sex: Female
  Weight: 69.2 kg

DRUGS (8)
  1. KUVAN [Suspect]
     Indication: PHENYLKETONURIA
     Dosage: 1000 MG, QD
     Route: 048
     Dates: start: 20080728
  2. KUVAN [Suspect]
     Dosage: 600 UNK, UNK
     Route: 048
  3. ALEVE [Concomitant]
     Indication: BACK PAIN
     Dosage: 440 MG, PRN
  4. PRENATAL VITAMINS                  /01549301/ [Concomitant]
     Indication: PREGNANCY
     Dosage: UNK, QD
  5. TYLENOL EXTRA STRENGTH [Concomitant]
     Indication: BACK PAIN
     Dosage: UNK, PRN
  6. VITAMIN D3 [Concomitant]
     Indication: PRODUCT USED FOR UNKNOWN INDICATION
     Dosage: 2000 IU, QD
  7. TUMS                               /00751519/ [Concomitant]
     Indication: NAUSEA
     Dosage: UNK, QD
  8. TUMS                               /00751519/ [Concomitant]
     Indication: MINERAL SUPPLEMENTATION

REACTIONS (5)
  - Road traffic accident [Unknown]
  - Depression [Recovering/Resolving]
  - Stress [Recovering/Resolving]
  - Vomiting in pregnancy [Recovering/Resolving]
  - Exposure during pregnancy [Unknown]
